FAERS Safety Report 4371804-9 (Version None)
Quarter: 2004Q2

REPORT INFORMATION
  Report Type: 
  Country: None (occurrence: None)
  Receive Date: 20040601
  Receipt Date: 20040518
  Transmission Date: 20050107
  Serious: Yes (Other)
  Sender: FDA-Public Use
  Company Number: 430018P04USA

PATIENT
  Age: 39 Year
  Sex: Male
  Weight: 74.3899 kg

DRUGS (10)
  1. NOVANTRONE [Suspect]
     Indication: MULTIPLE SCLEROSIS
     Dosage: 5 MG/M2, 1 IN 3 MONTHS, INTRAVENOUS
     Route: 042
     Dates: start: 20020510
  2. POTASSIUM [Concomitant]
  3. FUROSEMIDE [Concomitant]
  4. VENLAFAXINE HCL [Concomitant]
  5. OXYBUTYNIN [Concomitant]
  6. NITROFURANTOIN [Concomitant]
  7. AMANTADINE HCL [Concomitant]
  8. CETIRIZINE HCL [Concomitant]
  9. ATORVASTATIN CALCIUM [Concomitant]
  10. GARLIC [Concomitant]

REACTIONS (3)
  - BUNDLE BRANCH BLOCK RIGHT [None]
  - EJECTION FRACTION DECREASED [None]
  - QRS AXIS ABNORMAL [None]
